FAERS Safety Report 14093066 (Version 1)
Quarter: 2017Q4

REPORT INFORMATION
  Report Type: Spontaneous
  Country: AU (occurrence: AU)
  Receive Date: 20171016
  Receipt Date: 20171016
  Transmission Date: 20180321
  Serious: Yes (Hospitalization)
  Sender: FDA-Public Use
  Company Number: AU-WARNER CHILCOTT-2017-000203

PATIENT
  Age: 91 Year
  Sex: Male

DRUGS (7)
  1. CALCIUM CARBONATE W/COLECALCIFEROL [Suspect]
     Active Substance: CALCIUM CARBONATE\CHOLECALCIFEROL
     Indication: VITAMIN D DEFICIENCY
     Dosage: 1200 MG/25 MCG DAILY
     Route: 048
  2. DILTIAZEM. [Concomitant]
     Active Substance: DILTIAZEM
     Indication: HYPERTENSION
     Dosage: 240 MG DAILY
     Route: 065
  3. PANTOPRAZOLE [Suspect]
     Active Substance: PANTOPRAZOLE
     Indication: DUODENAL ULCER
     Dosage: 40 MG THREE TIMES DAILY
     Route: 048
  4. ASPIRIN. [Concomitant]
     Active Substance: ASPIRIN
     Indication: CARDIOVASCULAR EVENT PROPHYLAXIS
     Dosage: 100 MG DAILY
     Route: 065
  5. PANTOPRAZOLE [Suspect]
     Active Substance: PANTOPRAZOLE
     Dosage: 40 MG DAILY
     Route: 048
  6. ACTONEL [Suspect]
     Active Substance: RISEDRONATE SODIUM
     Indication: OSTEOPOROSIS
     Dosage: 35 MG ONCE WEEKLY
     Route: 048
  7. CANDESARTAN. [Concomitant]
     Active Substance: CANDESARTAN
     Indication: HYPERTENSION
     Dosage: 8 MG DAILY

REACTIONS (10)
  - Treatment noncompliance [Unknown]
  - Tetany [Recovered/Resolved]
  - Fall [Unknown]
  - Diarrhoea [Unknown]
  - Hypomagnesaemia [Recovered/Resolved]
  - Speech disorder [Unknown]
  - Muscle twitching [Unknown]
  - Hypocalcaemia [Recovered/Resolved]
  - Contraindicated drug prescribed [Unknown]
  - Muscular weakness [Unknown]
